FAERS Safety Report 7878119-2 (Version None)
Quarter: 2011Q4

REPORT INFORMATION
  Report Type: 
  Country: None (occurrence: None)
  Receive Date: 20111101
  Receipt Date: 20111021
  Transmission Date: 20120403
  Serious: No
  Sender: FDA-Public Use
  Company Number: US-BIOGENIDEC-2011BI040380

PATIENT
  Age: 41 Year
  Sex: Male

DRUGS (2)
  1. PREDNISONE [Concomitant]
     Indication: PREMEDICATION
  2. TYSABRI [Suspect]
     Indication: MULTIPLE SCLEROSIS
     Route: 042
     Dates: start: 20110921

REACTIONS (3)
  - NEUROPATHY PERIPHERAL [None]
  - PALPITATIONS [None]
  - HEADACHE [None]
